FAERS Safety Report 6004586-5 (Version None)
Quarter: 2008Q4

REPORT INFORMATION
  Report Type: 
  Country: None (occurrence: None)
  Receive Date: 20081216
  Receipt Date: 20080130
  Transmission Date: 20090506
  Serious: No
  Sender: FDA-Public Use
  Company Number: US-BRISTOL-MYERS SQUIBB COMPANY-14059539

PATIENT
  Sex: Male
  Weight: 84 kg

DRUGS (4)
  1. PRAVACHOL [Suspect]
     Indication: BLOOD CHOLESTEROL INCREASED
     Dosage: DRUG TAKEN DURING 2006-2007.
     Route: 048
     Dates: start: 20060101, end: 20070101
  2. PROTONIX [Concomitant]
  3. PLAVIX [Concomitant]
  4. TOPROL-XL [Concomitant]

REACTIONS (2)
  - ANXIETY [None]
  - HYPERHIDROSIS [None]
